FAERS Safety Report 8149591-8 (Version None)
Quarter: 2012Q1

REPORT INFORMATION
  Report Type: 
  Country: None (occurrence: None)
  Receive Date: 20120218
  Receipt Date: 20111102
  Transmission Date: 20120608
  Serious: No
  Sender: FDA-Public Use
  Company Number: US-ALLERGAN-1114461US

PATIENT
  Age: 42 Year
  Sex: Female
  Weight: 68.027 kg

DRUGS (1)
  1. BOTULINUM TOXIN TYPE A [Suspect]
     Indication: MIGRAINE
     Dosage: 31 UNITS, SINGLE
     Route: 030
     Dates: start: 20110705, end: 20110705

REACTIONS (9)
  - HYPERTENSION [None]
  - PANIC ATTACK [None]
  - HOT FLUSH [None]
  - ERYTHEMA [None]
  - INSOMNIA [None]
  - HEART RATE INCREASED [None]
  - TINNITUS [None]
  - ANXIETY [None]
  - NAUSEA [None]
